FAERS Safety Report 16841442 (Version 4)
Quarter: 2020Q3

REPORT INFORMATION
  Report Type: Spontaneous
  Country: AU (occurrence: AU)
  Receive Date: 20190923
  Receipt Date: 20200814
  Transmission Date: 20201102
  Serious: Yes (Other)
  Sender: FDA-Public Use
  Company Number: AU-AMERICAN REGENT INC-2019001730

PATIENT
  Sex: Female

DRUGS (2)
  1. PRISTIQ EXTENDED?RELEASE [Concomitant]
     Active Substance: DESVENLAFAXINE SUCCINATE
     Indication: PRODUCT USED FOR UNKNOWN INDICATION
     Dosage: 50 MILLIGRAM, 1 IN 1 D
     Route: 065
  2. FERINJECT [Suspect]
     Active Substance: FERRIC CARBOXYMALTOSE
     Indication: IRON DEFICIENCY
     Dosage: 1000 MILLIGRAM PER MILLILITRE

REACTIONS (3)
  - Herpes zoster [Recovered/Resolved]
  - Urticaria [Recovered/Resolved]
  - Pruritus [Recovered/Resolved]
